FAERS Safety Report 21549995 (Version 1)
Quarter: 2022Q4

REPORT INFORMATION
  Report Type: Spontaneous
  Country: CA (occurrence: CA)
  Receive Date: 20221103
  Receipt Date: 20221103
  Transmission Date: 20230113
  Serious: Yes (Other)
  Sender: FDA-Public Use
  Company Number: CA-PFIZER INC-202201271174

PATIENT
  Age: 78 Year
  Sex: Male

DRUGS (2)
  1. VYNDAQEL [Suspect]
     Active Substance: TAFAMIDIS MEGLUMINE
     Indication: Cardiac amyloidosis
     Dosage: 80 MG, 1X/DAY, 4 X 20 MG
     Route: 048
     Dates: start: 20220622
  2. VYNDAQEL [Suspect]
     Active Substance: TAFAMIDIS MEGLUMINE
     Indication: Amyloidosis senile

REACTIONS (7)
  - Atrial fibrillation [Unknown]
  - Bundle branch block right [Unknown]
  - Electrocardiogram QRS complex abnormal [Unknown]
  - Hypervolaemia [Unknown]
  - Hypertension [Unknown]
  - Weight increased [Unknown]
  - Oedema peripheral [Unknown]

NARRATIVE: CASE EVENT DATE: 20221020
